FAERS Safety Report 18602043 (Version 1)
Quarter: 2020Q4

REPORT INFORMATION
  Report Type: Spontaneous
  Country: US (occurrence: US)
  Receive Date: 20201210
  Receipt Date: 20201210
  Transmission Date: 20210114
  Serious: No
  Sender: FDA-Public Use
  Company Number: US-PFIZER INC-2020485347

PATIENT
  Age: 89 Year
  Sex: Female
  Weight: 68.03 kg

DRUGS (1)
  1. TOVIAZ [Suspect]
     Active Substance: FESOTERODINE FUMARATE
     Dosage: 4 MG, DAILY (FREQUENCY:- Q (EVERY) DAY))
     Route: 048

REACTIONS (1)
  - Therapeutic product effect incomplete [Unknown]
